FAERS Safety Report 11912996 (Version 1)
Quarter: 2016Q1

REPORT INFORMATION
  Report Type: Spontaneous
  Country: US (occurrence: US)
  Receive Date: 20160113
  Receipt Date: 20160113
  Transmission Date: 20160526
  Serious: No
  Sender: FDA-Public Use
  Company Number: US-009507513-1601USA003250

PATIENT
  Sex: Male

DRUGS (9)
  1. SINEMET [Suspect]
     Active Substance: CARBIDOPA\LEVODOPA
     Dosage: 1 DF (25/100 MG), QID
     Route: 048
     Dates: start: 20160108
  2. PRILOSEC [Concomitant]
     Active Substance: OMEPRAZOLE MAGNESIUM
     Dosage: UNK
     Route: 048
  3. DONEPEZIL. [Concomitant]
     Active Substance: DONEPEZIL
     Dosage: UNK
  4. SINEMET [Suspect]
     Active Substance: CARBIDOPA\LEVODOPA
     Indication: PARKINSON^S DISEASE
     Dosage: 1 DF (25/100 MG), QID
     Route: 048
     Dates: start: 201206, end: 20160108
  5. AMLODIPINE [Concomitant]
     Active Substance: AMLODIPINE BESYLATE
     Dosage: UNK
  6. MELOXICAM. [Concomitant]
     Active Substance: MELOXICAM
     Dosage: UNK
     Route: 048
  7. SINEMET [Suspect]
     Active Substance: CARBIDOPA\LEVODOPA
     Indication: PARKINSON^S DISEASE
     Dosage: 1 DF (25/100 MG), QID
     Route: 048
     Dates: start: 201206, end: 201206
  8. LEVOTHYROXINE SODIUM. [Concomitant]
     Active Substance: LEVOTHYROXINE SODIUM
     Dosage: UNK
     Route: 048
  9. AZILECT [Concomitant]
     Active Substance: RASAGILINE MESYLATE
     Dosage: UNK

REACTIONS (3)
  - Nausea [Not Recovered/Not Resolved]
  - Fatigue [Not Recovered/Not Resolved]
  - Dizziness [Not Recovered/Not Resolved]

NARRATIVE: CASE EVENT DATE: 2014
